FAERS Safety Report 5843529-1 (Version None)
Quarter: 2008Q3

REPORT INFORMATION
  Report Type: 
  Country: None (occurrence: None)
  Receive Date: 20080813
  Receipt Date: 20080807
  Transmission Date: 20090109
  Serious: No
  Sender: FDA-Public Use
  Company Number: US-ALLERGAN-0808405US

PATIENT
  Sex: Female
  Weight: 72.562 kg

DRUGS (7)
  1. ACULAR LS [Suspect]
     Indication: EYE PAIN
     Dosage: 1 GTT, QID
     Route: 047
     Dates: start: 20080315
  2. ACULAR LS [Suspect]
     Indication: POSTOPERATIVE CARE
     Dosage: 1 GTT, QID
     Route: 047
     Dates: start: 20080621, end: 20080709
  3. PRED FORTE [Suspect]
     Indication: POSTOPERATIVE CARE
     Dosage: 1 GTT, QID
     Route: 047
     Dates: start: 20080315
  4. PRED FORTE [Suspect]
     Dosage: 1 GTT, QID
     Route: 047
     Dates: start: 20080621
  5. PRED FORTE [Suspect]
     Dosage: 1 GTT, QD
     Route: 047
     Dates: start: 20080730
  6. ZYMAR [Suspect]
     Indication: POSTOPERATIVE CARE
     Dosage: 1 GTT, QID
     Route: 047
     Dates: start: 20080315
  7. ZYMAR [Suspect]
     Dosage: 1 GTT, QID
     Route: 047
     Dates: start: 20080621

REACTIONS (4)
  - CONJUNCTIVAL HAEMORRHAGE [None]
  - HEADACHE [None]
  - OCULAR ICTERUS [None]
  - PETECHIAE [None]
